FAERS Safety Report 7881362-X (Version None)
Quarter: 2011Q4

REPORT INFORMATION
  Report Type: 
  Country: None (occurrence: None)
  Receive Date: 20111101
  Receipt Date: 20110527
  Transmission Date: 20120403
  Serious: Yes (Other)
  Sender: FDA-Public Use
  Company Number: US-AMGEN-USASP2011023763

PATIENT
  Sex: Female

DRUGS (5)
  1. MULTI-VITAMINS [Concomitant]
  2. CALCIUM + VITAMIN D [Concomitant]
  3. ENBREL [Suspect]
     Indication: RHEUMATOID ARTHRITIS
     Dosage: 50 MG, QWK
     Dates: start: 20100101
  4. ENBREL [Suspect]
     Dates: start: 20100101
  5. SEPTRA [Concomitant]

REACTIONS (3)
  - HYPERSENSITIVITY [None]
  - SKIN LESION [None]
  - STEVENS-JOHNSON SYNDROME [None]
